FAERS Safety Report 4659867-4 (Version None)
Quarter: 2005Q2

REPORT INFORMATION
  Report Type: 
  Country: None (occurrence: None)
  Receive Date: 20050502
  Receipt Date: 20040913
  Transmission Date: 20051028
  Serious: Yes (Hospitalization)
  Sender: FDA-Public Use
  Company Number: US090857

PATIENT
  Age: 56 Year
  Sex: Male
  Weight: 88.5 kg

DRUGS (20)
  1. EPOGEN [Suspect]
     Indication: RENAL FAILURE CHRONIC
     Dosage: 20000 IU, 2 IN 1 WEEKS
     Dates: start: 20010101
  2. TACROLIMUS [Concomitant]
  3. MYCOPHENOLATE MOFETIL [Concomitant]
  4. CLOPIDOGREL BISULFATE [Concomitant]
  5. MAGNESIUM OXIDE [Concomitant]
  6. EZETIMIBE [Concomitant]
  7. CLOTRIMAZOLE [Concomitant]
  8. IRON [Concomitant]
  9. LABETALOL [Concomitant]
  10. DOXAZOSIN MESYLATE [Concomitant]
  11. SEVELAMER HCL [Concomitant]
  12. TORSEMIDE [Concomitant]
  13. CLONIDINE [Concomitant]
  14. INSULIN LISPRO [Concomitant]
  15. INSULIN GLARGINE [Concomitant]
  16. AMLODIPINE BESYLATE [Concomitant]
  17. FAMOTIDINE [Concomitant]
  18. PYRIDOXINE HYDROCHLORIDE [Concomitant]
  19. SODIUM BICARBONATE [Concomitant]
  20. ASCORBIC ACID [Concomitant]

REACTIONS (4)
  - BLOOD CREATININE INCREASED [None]
  - HAEMOGLOBIN DECREASED [None]
  - HEADACHE [None]
  - HYPERTENSION [None]
